FAERS Safety Report 7557215-3 (Version None)
Quarter: 2011Q2

REPORT INFORMATION
  Report Type: 
  Country: None (occurrence: None)
  Receive Date: 20110620
  Receipt Date: 20101207
  Transmission Date: 20111010
  Serious: No
  Sender: FDA-Public Use
  Company Number: US-MYLANLABS-2010S1022451

PATIENT
  Age: 7 Year
  Sex: Male

DRUGS (10)
  1. PERFOROMIST [Suspect]
     Indication: ASTHMA
     Route: 055
     Dates: start: 20101206
  2. CALCIUM CARBONATE [Concomitant]
  3. ADVAIR DISKUS 100/50 [Concomitant]
     Indication: ASTHMA
     Dosage: 100/50
     Route: 055
  4. PREDNISONE [Concomitant]
  5. M.V.I. [Concomitant]
  6. LORATADINE [Concomitant]
  7. NASONEX [Concomitant]
     Dosage: IN EACH NOSTRIL
     Route: 055
  8. SINGULAIR [Concomitant]
  9. ORAPRED [Suspect]
     Indication: ASTHMA
     Route: 048
     Dates: start: 20101206
  10. XOPENEX [Concomitant]

REACTIONS (1)
  - ABDOMINAL PAIN UPPER [None]
